FAERS Safety Report 4971559-0 (Version None)
Quarter: 2006Q2

REPORT INFORMATION
  Report Type: 
  Country: None (occurrence: None)
  Receive Date: 20060413
  Receipt Date: 20060407
  Transmission Date: 20061013
  Serious: Yes (Hospitalization)
  Sender: FDA-Public Use
  Company Number: FR-AVENTIS-200611285FR

PATIENT
  Age: 51 Year
  Sex: Male

DRUGS (3)
  1. FLAGYL [Suspect]
     Route: 048
     Dates: start: 20060219, end: 20060301
  2. LOVENOX [Suspect]
     Route: 058
     Dates: start: 20060219, end: 20060302
  3. AUGMENTIN '125' [Concomitant]
     Dates: start: 20060219, end: 20060305

REACTIONS (1)
  - THROMBOCYTHAEMIA [None]
